FAERS Safety Report 7923228-2 (Version None)
Quarter: 2011Q4

REPORT INFORMATION
  Report Type: 
  Country: None (occurrence: None)
  Receive Date: 20111117
  Receipt Date: 20110131
  Transmission Date: 20120403
  Serious: No
  Sender: FDA-Public Use
  Company Number: US-AMGEN-USASP2011005744

PATIENT
  Age: 44 Year
  Sex: Female
  Weight: 100.68 kg

DRUGS (12)
  1. ARAVA [Concomitant]
     Dosage: 10 MG, UNK
  2. ADVAIR DISKUS 100/50 [Concomitant]
     Dosage: UNK
  3. SIMVASTATIN [Concomitant]
     Dosage: 10 MG, UNK
  4. ENBREL [Suspect]
     Indication: PRODUCT USED FOR UNKNOWN INDICATION
     Dosage: 50 MG, QWK
  5. PULMICORT [Concomitant]
  6. ZYRTEC [Concomitant]
     Dosage: 10 MG, UNK
  7. ALBUTEROL [Concomitant]
  8. MIRALAX [Concomitant]
  9. PLAQUENIL [Concomitant]
     Dosage: 200 UNK, UNK
  10. NASONEX [Concomitant]
     Dosage: 50 UNK, UNK
     Route: 045
  11. PROAIR HFA [Concomitant]
  12. XOPENEX [Concomitant]

REACTIONS (1)
  - HEADACHE [None]
